FAERS Safety Report 9707271 (Version 2)
Quarter: 2013Q4

REPORT INFORMATION
  Report Type: Spontaneous
  Country: US (occurrence: US)
  Receive Date: 20131125
  Receipt Date: 20131212
  Transmission Date: 20140711
  Serious: No
  Sender: FDA-Public Use
  Company Number: US-009507513-1311USA009572

PATIENT
  Sex: Female

DRUGS (1)
  1. MIRALAX [Suspect]
     Indication: IMPAIRED GASTRIC EMPTYING
     Dosage: 34 G, QPM
     Route: 048
     Dates: start: 2009

REACTIONS (3)
  - Incorrect drug administration duration [Unknown]
  - Overdose [Unknown]
  - Product quality issue [Unknown]
